FAERS Safety Report 23727802 (Version 1)
Quarter: 2024Q2

REPORT INFORMATION
  Report Type: Spontaneous
  Country: US (occurrence: US)
  Receive Date: 20240410
  Receipt Date: 20240410
  Transmission Date: 20240716
  Serious: Yes (Other)
  Sender: FDA-Public Use
  Company Number: US-JNJFOC-20240404028

PATIENT
  Age: 31 Year
  Sex: Female

DRUGS (1)
  1. TYLENOL PM [Suspect]
     Active Substance: ACETAMINOPHEN\DIPHENHYDRAMINE
     Indication: Product used for unknown indication
     Dosage: TOOK 20 IN ONE DAY
     Route: 065
     Dates: start: 20240327

REACTIONS (6)
  - Suicide attempt [Unknown]
  - Hallucination [Recovered/Resolved]
  - Intentional overdose [Unknown]
  - Dyspnoea [Unknown]
  - Dizziness [Unknown]
  - Insomnia [Unknown]

NARRATIVE: CASE EVENT DATE: 20240301
